FAERS Safety Report 16468864 (Version 1)
Quarter: 2019Q2

REPORT INFORMATION
  Report Type: Spontaneous
  Country: US (occurrence: US)
  Receive Date: 20190624
  Receipt Date: 20190624
  Transmission Date: 20190711
  Serious: No
  Sender: FDA-Public Use
  Company Number: US-PFIZER INC-2019268461

PATIENT
  Age: 82 Year
  Sex: Male

DRUGS (1)
  1. SUTENT [Suspect]
     Active Substance: SUNITINIB MALATE
     Indication: RENAL CANCER
     Dosage: 25 MG, CYCLIC (1 CAPSULE A DAY FOR 28 DAYS FOLLOWED BY A TWO WEEK REST)
     Route: 048
     Dates: start: 201904

REACTIONS (2)
  - Diarrhoea [Unknown]
  - Fatigue [Unknown]
